FAERS Safety Report 8719833 (Version 3)
Quarter: 2013Q4

REPORT INFORMATION
  Report Type: Spontaneous
  Country: US (occurrence: US)
  Receive Date: 20120813
  Receipt Date: 20131030
  Transmission Date: 20140711
  Serious: Yes (Hospitalization)
  Sender: FDA-Public Use
  Company Number: US-BAYER-2012-079296

PATIENT
  Age: 30 Year
  Sex: Female
  Weight: 68 kg

DRUGS (3)
  1. YAZ [Suspect]
     Indication: CONTRACEPTION
     Dosage: UNK
     Dates: start: 201002, end: 201012
  2. GIANVI [Suspect]
     Indication: CONTRACEPTION
     Dosage: UNK
     Dates: start: 201002, end: 201012
  3. ALEVE [Concomitant]

REACTIONS (8)
  - Deep vein thrombosis [None]
  - Thrombophlebitis superficial [Recovered/Resolved]
  - General physical health deterioration [None]
  - Pain [None]
  - Injury [None]
  - Emotional distress [None]
  - Pain [None]
  - Anxiety [None]
